FAERS Safety Report 25496295 (Version 1)
Quarter: 2025Q2

REPORT INFORMATION
  Report Type: Other
  Country: US (occurrence: US)
  Receive Date: 20250630
  Receipt Date: 20250630
  Transmission Date: 20250717
  Serious: Yes (Hospitalization, Other)
  Sender: HLS THERAPEUTICS
  Company Number: US-HLS-202500253

PATIENT
  Age: 57 Year
  Sex: Female

DRUGS (14)
  1. CLOZAPINE [Suspect]
     Active Substance: CLOZAPINE
     Indication: Schizophrenia
     Dosage: 100 MG NIGHTLY
     Route: 048
  2. CLOZAPINE [Suspect]
     Active Substance: CLOZAPINE
     Indication: Schizophrenia
     Route: 048
  3. CLOZAPINE [Suspect]
     Active Substance: CLOZAPINE
     Indication: Schizophrenia
     Route: 048
  4. CIPROFLOXACIN [Suspect]
     Active Substance: CIPROFLOXACIN
     Indication: Product used for unknown indication
     Dosage: DAY1-7
     Route: 065
  5. TACROLIMUS [Concomitant]
     Active Substance: TACROLIMUS
     Indication: Dermatitis contact
     Route: 061
  6. Methyl salicylate-menthol [Concomitant]
     Indication: Analgesic therapy
     Dosage: 15-10%
     Route: 061
  7. CHOLECALCIFEROL [Concomitant]
     Active Substance: CHOLECALCIFEROL
     Indication: Vitamin D deficiency
     Route: 048
  8. LATANOPROST [Concomitant]
     Active Substance: LATANOPROST
     Indication: Glaucoma
     Route: 047
  9. CLOBETASOL [Concomitant]
     Active Substance: CLOBETASOL
     Indication: Dermatosis
     Route: 061
  10. BETAMETHASONE DIPROPIONATE AUGMENTED [Concomitant]
     Active Substance: BETAMETHASONE DIPROPIONATE
     Indication: Dermatosis
     Route: 061
  11. DIVALPROEX SODIUM ER [Concomitant]
     Active Substance: DIVALPROEX SODIUM
     Indication: Seizure
     Dosage: NIGHTLY
     Route: 048
  12. Albuterol sulfate 90 HFA [Concomitant]
     Indication: Chronic obstructive pulmonary disease
     Route: 065
  13. Albuterol sulfate 90 HFA [Concomitant]
     Indication: Dyspnoea
     Route: 065
  14. Albuterol sulfate 90 HFA [Concomitant]
     Indication: Wheezing
     Route: 065

REACTIONS (10)
  - Cellulitis [Recovering/Resolving]
  - Acute kidney injury [Unknown]
  - Crohn^s disease [Unknown]
  - Drug interaction [Unknown]
  - Drug level increased [Unknown]
  - Hyponatraemia [Unknown]
  - Metabolic acidosis [Unknown]
  - Psychiatric symptom [Unknown]
  - Sedation [Unknown]
  - Sepsis [Unknown]

NARRATIVE: CASE EVENT DATE: 20240101
